FAERS Safety Report 24996831 (Version 1)
Quarter: 2025Q1

REPORT INFORMATION
  Report Type: Spontaneous
  Country: HU (occurrence: HU)
  Receive Date: 20250221
  Receipt Date: 20250221
  Transmission Date: 20250409
  Serious: Yes (Death, Hospitalization, Other)
  Sender: ALEXION PHARMACEUTICALS
  Company Number: HU-ASTRAZENECA-202502EEA016309HU

PATIENT
  Age: 70 Year

DRUGS (1)
  1. SOLIRIS [Suspect]
     Active Substance: ECULIZUMAB
     Route: 065

REACTIONS (4)
  - Infection [Unknown]
  - Fungal infection [Unknown]
  - Sepsis [Unknown]
  - Death [Fatal]
